FAERS Safety Report 23378379 (Version 2)
Quarter: 2024Q1

REPORT INFORMATION
  Report Type: Report from Study
  Country: US (occurrence: US)
  Receive Date: 20240108
  Receipt Date: 20240111
  Transmission Date: 20240409
  Serious: Yes (Other)
  Sender: FDA-Public Use
  Company Number: US-ALNYLAM PHARMACEUTICALS, INC.-ALN-2024-000032

PATIENT

DRUGS (2)
  1. GIVLAARI [Suspect]
     Active Substance: GIVOSIRAN SODIUM
     Indication: Product used for unknown indication
     Dosage: 158 MILLIGRAM PER MILLILITRE, MONTHLY (189 MG/ML VIALS)
     Route: 058
     Dates: start: 20230403, end: 202312
  2. GIVLAARI [Suspect]
     Active Substance: GIVOSIRAN SODIUM
     Dosage: 144.32 MILLIGRAM, MONTHLY
     Route: 058

REACTIONS (5)
  - Pulmonary congestion [Unknown]
  - Feeling abnormal [Unknown]
  - Cough [Unknown]
  - Pyrexia [Unknown]
  - Suspected COVID-19 [Unknown]

NARRATIVE: CASE EVENT DATE: 20231226
